FAERS Safety Report 4548828-1 (Version None)
Quarter: 2004Q4

REPORT INFORMATION
  Report Type: 
  Country: None (occurrence: None)
  Receive Date: 20041227
  Receipt Date: 20040907
  Transmission Date: 20050328
  Serious: No
  Sender: FDA-Public Use
  Company Number: 03P-163-0220017-00

PATIENT
  Age: 59 Year
  Sex: Female
  Weight: 92.0802 kg

DRUGS (12)
  1. HUMIRA [Suspect]
     Indication: RHEUMATOID ARTHRITIS
     Dosage: 40 MG, 1 IN 2 WK, SUBCUTANEOUS
     Route: 058
     Dates: start: 20030520
  2. PREDNISONE [Concomitant]
  3. SULFASALAZINE [Concomitant]
  4. METHOTREXATE [Concomitant]
  5. BUCINDOLOL HYDROCHLORIDE [Concomitant]
  6. FOLIC ACID [Concomitant]
  7. LEVOTHYROXINE SODIUM [Concomitant]
  8. TOCOPHEROL CONCENTRATE CAP [Concomitant]
  9. VITAMIN B COMPLEX CAP [Concomitant]
  10. CALCIUM GLUCONATE [Concomitant]
  11. FISH OIL [Concomitant]
  12. TRIAMTERENE [Concomitant]

REACTIONS (10)
  - BLOOD PRESSURE INCREASED [None]
  - COUGH [None]
  - INFLUENZA [None]
  - INJECTION SITE ERYTHEMA [None]
  - INJECTION SITE PRURITUS [None]
  - JOINT SWELLING [None]
  - NASOPHARYNGITIS [None]
  - OEDEMA [None]
  - PAIN [None]
  - PHARYNGOLARYNGEAL PAIN [None]
